FAERS Safety Report 8577542-0 (Version None)
Quarter: 2012Q3

REPORT INFORMATION
  Report Type: 
  Country: None (occurrence: None)
  Receive Date: 20120807
  Receipt Date: 20120731
  Transmission Date: 20120928
  Serious: Yes (Hospitalization)
  Sender: FDA-Public Use
  Company Number: US-BAYER-2012-077643

PATIENT
  Age: 66 Year
  Sex: Female
  Weight: 87.528 kg

DRUGS (12)
  1. BAPINEUZUMAB; PLACEBO [Suspect]
     Indication: DEMENTIA
     Dosage: UNK
     Dates: start: 20110810
  2. LEVOTHYROXINE SODIUM [Concomitant]
     Dosage: UNK
     Dates: start: 20110810
  3. LOVAZA [Concomitant]
     Dosage: UNK
     Dates: start: 20091223
  4. IBUPROFEN [Suspect]
     Indication: ARTHRALGIA
     Dosage: 600 MG, PRN
     Route: 048
     Dates: start: 20120418
  5. SERTRALINE HYDROCHLORIDE [Concomitant]
     Dosage: UNK
     Dates: start: 20110520
  6. VITAMIN D [Concomitant]
     Dosage: UNK
     Dates: start: 20100708
  7. ALEVE (CAPLET) [Suspect]
     Indication: BACK PAIN
     Dosage: 200 MG, PRN
     Route: 048
     Dates: start: 20120215
  8. HYDROXYCHLOROQUINE SULFATE [Concomitant]
     Dosage: UNK
     Dates: start: 20100708
  9. LISINOPRIL [Concomitant]
     Dosage: UNK
     Dates: start: 20001208
  10. NAMENDA [Concomitant]
     Dosage: UNK
     Dates: start: 20101101
  11. LYRICA [Concomitant]
     Dosage: UNK
     Dates: start: 20120117
  12. ARICEPT [Concomitant]
     Dosage: UNK
     Dates: start: 20110301

REACTIONS (3)
  - FAECES DISCOLOURED [None]
  - GASTRIC ULCER HAEMORRHAGE [None]
  - PAIN [None]
